FAERS Safety Report 25567564 (Version 1)
Quarter: 2025Q3

REPORT INFORMATION
  Report Type: Spontaneous
  Country: US (occurrence: US)
  Receive Date: 20250716
  Receipt Date: 20250716
  Transmission Date: 20251020
  Serious: No
  Sender: FENNEC PHARMACEUTICALS
  Company Number: US-FENNEC PHARMACEUTICALS, INC.-2025FEN00050

PATIENT
  Age: 64 Year
  Sex: Male

DRUGS (10)
  1. PEDMARK [Suspect]
     Active Substance: SODIUM THIOSULFATE
     Dosage: 38.4 G 1X/WEEK (7DAYS) ON THURSDAYS
     Route: 042
     Dates: start: 20250424, end: 20250424
  2. LORAZEPAM [Concomitant]
     Active Substance: LORAZEPAM
     Route: 048
  3. OLANZAPINE [Concomitant]
     Active Substance: OLANZAPINE
     Dosage: 5 MG, 1X/WEEK FOR 7 DOSES
     Route: 048
  4. DEXAMETHASONE [Concomitant]
     Active Substance: DEXAMETHASONE
     Dosage: 4 MG, 1X/DAY WITH BREAKFAST ON DAYS 2-3 AFTER CHEMOTHERAPY INFUSION
     Route: 048
  5. DEXAMETHASONE [Concomitant]
     Active Substance: DEXAMETHASONE
     Dosage: 8 MG (2 OF THE 4 MG TABLETS), 1X/DAY, 30 MINUTES PRIOR TO PEDMARK FOR UP TO 1 DOSE
     Route: 048
  6. BANOPHEN [Concomitant]
     Active Substance: DIPHENHYDRAMINE HYDROCHLORIDE
     Route: 048
  7. PROCHLORPERAZINE [Concomitant]
     Active Substance: PROCHLORPERAZINE
  8. ONDANSETRON [Concomitant]
     Active Substance: ONDANSETRON
     Route: 042
  9. DIPHENHYDRAMINE [Concomitant]
     Active Substance: DIPHENHYDRAMINE
     Route: 042
  10. FAMOTIDINE [Concomitant]
     Active Substance: FAMOTIDINE
     Route: 042

REACTIONS (3)
  - Feeling abnormal [Unknown]
  - Nausea [Recovered/Resolved]
  - Off label use [Unknown]

NARRATIVE: CASE EVENT DATE: 20250424
